FAERS Safety Report 6560224-4 (Version None)
Quarter: 2010Q1

REPORT INFORMATION
  Report Type: 
  Country: None (occurrence: None)
  Receive Date: 20100129
  Receipt Date: 20050203
  Transmission Date: 20100710
  Serious: No
  Sender: FDA-Public Use
  Company Number: US-ALLERGAN-200501025

PATIENT
  Age: 58 Year
  Sex: Female

DRUGS (3)
  1. BOTOX COSMETIC [Suspect]
     Indication: SKIN WRINKLING
     Route: 030
     Dates: start: 20040203
  2. FIORICET [Concomitant]
     Indication: MIGRAINE
  3. ZOMIG [Concomitant]
     Indication: MIGRAINE

REACTIONS (4)
  - CHILLS [None]
  - HEADACHE [None]
  - PAIN IN EXTREMITY [None]
  - PYREXIA [None]
